FAERS Safety Report 24803420 (Version 3)
Quarter: 2025Q1

REPORT INFORMATION
  Report Type: Spontaneous
  Country: BE (occurrence: BE)
  Receive Date: 20250103
  Receipt Date: 20250124
  Transmission Date: 20250409
  Serious: Yes (Death, Other)
  Sender: NOVARTIS
  Company Number: BE-002147023-NVSC2024BE247525

PATIENT
  Sex: Male

DRUGS (3)
  1. PLUVICTO [Suspect]
     Active Substance: LUTETIUM LU-177 VIPIVOTIDE TETRAXETAN
     Indication: Hormone-refractory prostate cancer
     Route: 050
     Dates: start: 20240829
  2. PLUVICTO [Suspect]
     Active Substance: LUTETIUM LU-177 VIPIVOTIDE TETRAXETAN
     Route: 050
     Dates: start: 20241010
  3. PLUVICTO [Suspect]
     Active Substance: LUTETIUM LU-177 VIPIVOTIDE TETRAXETAN
     Route: 050
     Dates: start: 20241205

REACTIONS (10)
  - Coma [Fatal]
  - Cerebral haemorrhage [Fatal]
  - Thrombocytopenia [Fatal]
  - Anaemia [Unknown]
  - General physical health deterioration [Unknown]
  - Bone pain [Unknown]
  - Prostatic specific antigen increased [Unknown]
  - Blood alkaline phosphatase increased [Unknown]
  - Metastases to bone [Unknown]
  - Bicytopenia [Unknown]

NARRATIVE: CASE EVENT DATE: 20240101
